FAERS Safety Report 7939688-7 (Version None)
Quarter: 2011Q4

REPORT INFORMATION
  Report Type: 
  Country: None (occurrence: None)
  Receive Date: 20111125
  Receipt Date: 20111116
  Transmission Date: 20120403
  Serious: Yes (Life-Threatening, Hospitalization)
  Sender: FDA-Public Use
  Company Number: CHNY2011IN000474

PATIENT
  Age: 42 Year
  Sex: Female

DRUGS (1)
  1. DICLOFENAC SODIUM [Suspect]
     Indication: BACK PAIN
     Dosage: ONCE/SINGLE
     Route: 061
     Dates: start: 20110701

REACTIONS (4)
  - CARDIO-RESPIRATORY ARREST [None]
  - CIRCULATORY COLLAPSE [None]
  - ANAPHYLACTIC SHOCK [None]
  - NEUROGENIC SHOCK [None]
